FAERS Safety Report 4979196-9 (Version None)
Quarter: 2006Q2

REPORT INFORMATION
  Report Type: 
  Country: None (occurrence: None)
  Receive Date: 20060421
  Receipt Date: 20060324
  Transmission Date: 20061013
  Serious: Yes (Other)
  Sender: FDA-Public Use
  Company Number: FR-GLAXOSMITHKLINE-B0417371A

PATIENT
  Age: 19 Year
  Sex: Male

DRUGS (1)
  1. ZYBAN [Suspect]
     Indication: SMOKING CESSATION THERAPY
     Dosage: 150MG VARIABLE DOSE
     Route: 048

REACTIONS (5)
  - AGGRESSION [None]
  - INSOMNIA [None]
  - LETHARGY [None]
  - NAUSEA [None]
  - VOMITING [None]
